FAERS Safety Report 5008863-6 (Version None)
Quarter: 2006Q2

REPORT INFORMATION
  Report Type: 
  Country: None (occurrence: None)
  Receive Date: 20060519
  Receipt Date: 20060512
  Transmission Date: 20061013
  Serious: Yes (Other)
  Sender: FDA-Public Use
  Company Number: HCDA20060002

PATIENT
  Age: 31 Year
  Sex: Male

DRUGS (1)
  1. HYDROCODONE BITARTRATE + ACETAMINOPHEN [Suspect]

REACTIONS (4)
  - DRUG ABUSER [None]
  - NASAL NECROSIS [None]
  - PALATAL DISORDER [None]
  - SPEECH DISORDER [None]
